FAERS Safety Report 10003792 (Version 2)
Quarter: 2014Q1

REPORT INFORMATION
  Report Type: Report from Study
  Country: US (occurrence: US)
  Receive Date: 20140312
  Receipt Date: 20140312
  Transmission Date: 20141002
  Serious: Yes (Other)
  Sender: FDA-Public Use
  Company Number: US-ABBVIE-13P-163-1101448-00

PATIENT
  Age: 46 Year
  Sex: Male
  Weight: 83.54 kg

DRUGS (11)
  1. DEPAKOTE [Suspect]
     Indication: GRAND MAL CONVULSION
     Dosage: TWICE DAILY AT 12PM (NOON) + 6:30PM
     Route: 048
     Dates: start: 201202
  2. KEPPRA [Concomitant]
     Indication: GRAND MAL CONVULSION
     Route: 048
  3. PLAVIX [Concomitant]
     Indication: PRODUCT USED FOR UNKNOWN INDICATION
     Route: 048
  4. LISINOPRIL [Concomitant]
     Indication: HYPERTENSION
     Route: 048
  5. METOPROLOL [Concomitant]
     Indication: PRODUCT USED FOR UNKNOWN INDICATION
  6. RANEXA [Concomitant]
     Indication: PRODUCT USED FOR UNKNOWN INDICATION
     Route: 048
  7. ISOSORBIDE [Concomitant]
     Indication: PRODUCT USED FOR UNKNOWN INDICATION
     Route: 048
  8. ASPIRIN [Concomitant]
     Indication: PRODUCT USED FOR UNKNOWN INDICATION
     Route: 048
  9. LORAZEPAM [Concomitant]
     Indication: PRODUCT USED FOR UNKNOWN INDICATION
     Dosage: PRN AT 7PM OR QHS
     Route: 048
  10. SIMVASTATIN [Concomitant]
     Indication: PRODUCT USED FOR UNKNOWN INDICATION
     Dosage: 1 IN 1 DAY AT HOUR OF SLEEP
     Route: 048
  11. AMBIEN [Concomitant]
     Indication: SLEEP DISORDER THERAPY
     Dates: end: 2013

REACTIONS (3)
  - Grand mal convulsion [Recovered/Resolved]
  - Vomiting [Recovered/Resolved]
  - Amnesia [Not Recovered/Not Resolved]
